FAERS Safety Report 5965095-2 (Version None)
Quarter: 2008Q4

REPORT INFORMATION
  Report Type: 
  Country: None (occurrence: None)
  Receive Date: 20081124
  Receipt Date: 20081124
  Transmission Date: 20090506
  Serious: Yes (Hospitalization)
  Sender: FDA-Public Use
  Company Number: None

PATIENT
  Sex: Male
  Weight: 69 kg

DRUGS (1)
  1. CYTARABINE [Suspect]
     Dosage: 31860 MG
     Dates: start: 20081002, end: 20081007

REACTIONS (18)
  - BETA HAEMOLYTIC STREPTOCOCCAL INFECTION [None]
  - BLOOD COUNT ABNORMAL [None]
  - BLOOD CULTURE POSITIVE [None]
  - COLITIS [None]
  - COMPUTERISED TOMOGRAM ABNORMAL [None]
  - CULTURE THROAT POSITIVE [None]
  - DRUG TOXICITY [None]
  - DYSPHAGIA [None]
  - DYSPNOEA [None]
  - ERYTHEMA [None]
  - ESCHERICHIA INFECTION [None]
  - ORAL DISORDER [None]
  - OROPHARYNGEAL PAIN [None]
  - PSEUDOMONAS INFECTION [None]
  - PYREXIA [None]
  - STRIDOR [None]
  - TACHYCARDIA [None]
  - TRACHEAL INFLAMMATION [None]
